FAERS Safety Report 22034155 (Version 1)
Quarter: 2023Q1

REPORT INFORMATION
  Report Type: Spontaneous
  Country: US (occurrence: US)
  Receive Date: 20230224
  Receipt Date: 20230224
  Transmission Date: 20230418
  Serious: No
  Sender: FDA-Public Use
  Company Number: US-SA-SAC20230222000159

PATIENT
  Sex: Female
  Weight: 76 kg

DRUGS (1)
  1. DUPIXENT [Suspect]
     Active Substance: DUPILUMAB
     Indication: Dermatitis atopic
     Dosage: 300 MG, QOW
     Route: 058
     Dates: start: 20221202

REACTIONS (7)
  - Pain in extremity [Not Recovered/Not Resolved]
  - Neurodermatitis [Not Recovered/Not Resolved]
  - Irritability [Not Recovered/Not Resolved]
  - Skin disorder [Unknown]
  - Pruritus [Not Recovered/Not Resolved]
  - Rash [Not Recovered/Not Resolved]
  - Drug ineffective [Unknown]
